FAERS Safety Report 9972602 (Version 1)
Quarter: 2014Q1

REPORT INFORMATION
  Report Type: Report from Study
  Country: US (occurrence: US)
  Receive Date: 20140306
  Receipt Date: 20140306
  Transmission Date: 20141002
  Serious: No
  Sender: FDA-Public Use
  Company Number: US-ABBVIE-13P-163-1154153-00

PATIENT
  Age: 54 Year
  Sex: Female

DRUGS (19)
  1. HUMIRA [Suspect]
     Indication: CROHN^S DISEASE
     Dates: start: 20130705
  2. LANSOPRAZOLE [Concomitant]
     Indication: GASTROOESOPHAGEAL REFLUX DISEASE
     Dosage: 30 MG DAILY
  3. DICYCLOMINE [Concomitant]
     Indication: CROHN^S DISEASE
  4. POLYEHTYLENE GLYCOL POWDER [Concomitant]
     Indication: CROHN^S DISEASE
     Dosage: 3/350 MG DAILY
  5. MERCAPTOPURINE [Concomitant]
     Indication: CROHN^S DISEASE
     Dosage: 50 MG DAILY
  6. LISINOPRIL [Concomitant]
     Indication: HYPERTENSION
     Dosage: 40 MG DAILY
  7. TRADJENTA [Concomitant]
     Indication: DIABETES MELLITUS
     Dosage: 5 MG DAILY
  8. TRAMADOL [Concomitant]
     Indication: INFLAMMATION
  9. NASONEX [Concomitant]
     Indication: ASTHMA
     Dosage: DAILY
  10. ZYRTEC [Concomitant]
     Indication: ASTHMA
     Dosage: DAILY
  11. XALATAN [Concomitant]
     Indication: GLAUCOMA
     Dosage: .005% EYE DROPS-ONE DROP BOTH EYES
  12. COD LIVER OIL [Concomitant]
     Indication: PRODUCT USED FOR UNKNOWN INDICATION
  13. CENTRUM [Concomitant]
     Indication: VITAMIN SUPPLEMENTATION
  14. B12 [Concomitant]
     Indication: VITAMIN SUPPLEMENTATION
  15. CITRUCEL [Concomitant]
     Indication: VITAMIN SUPPLEMENTATION
  16. IRON [Concomitant]
     Indication: MINERAL SUPPLEMENTATION
  17. LEVSIN [Concomitant]
     Indication: MUSCLE SPASMS
     Dosage: AS NEEDED
  18. PREDNISONE [Concomitant]
     Indication: PRODUCT USED FOR UNKNOWN INDICATION
     Dosage: 10 MG DAILY
  19. PREDNISONE [Concomitant]
     Dosage: DECREASED TO 5 MG DAILY

REACTIONS (1)
  - Injection site pain [Recovered/Resolved]
